FAERS Safety Report 4280335-6 (Version None)
Quarter: 2004Q1

REPORT INFORMATION
  Report Type: 
  Country: None (occurrence: None)
  Receive Date: 20040127
  Receipt Date: 20031002
  Transmission Date: 20041129
  Serious: Yes (Life-Threatening, Hospitalization)
  Sender: FDA-Public Use
  Company Number: UK064438

PATIENT
  Age: 69 Year
  Sex: Male

DRUGS (3)
  1. KINERET [Suspect]
     Indication: RHEUMATOID ARTHRITIS
     Dosage: 100 MG, 1 IN 1 DAYS, SC
     Route: 058
     Dates: start: 20020708, end: 20021123
  2. METHOTREXATE [Suspect]
  3. PREDNISOLONE [Suspect]
     Dosage: 5 MG, PO
     Route: 048

REACTIONS (2)
  - POST PROCEDURAL COMPLICATION [None]
  - UROSEPSIS [None]
